FAERS Safety Report 18343775 (Version 2)
Quarter: 2020Q4

REPORT INFORMATION
  Report Type: Spontaneous
  Country: US (occurrence: US)
  Receive Date: 20201005
  Receipt Date: 20201009
  Transmission Date: 20210114
  Serious: Yes (Hospitalization, Other)
  Sender: FDA-Public Use
  Company Number: US-ASTRAZENECA-2020SF25291

PATIENT
  Age: 23380 Day
  Sex: Female
  Weight: 98.9 kg

DRUGS (52)
  1. FARXIGA [Suspect]
     Active Substance: DAPAGLIFLOZIN PROPANEDIOL
     Indication: WEIGHT DECREASED
     Route: 048
     Dates: start: 20151013, end: 20151204
  2. ESCITALOPRAM [Concomitant]
     Active Substance: ESCITALOPRAM OXALATE
  3. SULFAMETHOXAZOLE [Concomitant]
     Active Substance: SULFAMETHOXAZOLE
  4. CHLORTHALIDONE. [Concomitant]
     Active Substance: CHLORTHALIDONE
  5. CLOPIDOGREL [Concomitant]
     Active Substance: CLOPIDOGREL BISULFATE
  6. NPH INSULIN [Concomitant]
     Active Substance: INSULIN BEEF
  7. STATIN [Concomitant]
     Active Substance: UNSPECIFIED INGREDIENT
  8. ACETLSALICYLIC ACID [Concomitant]
  9. MULTIVITAMINS [Concomitant]
     Active Substance: VITAMINS
  10. VITAMIN D3 [Concomitant]
     Active Substance: CHOLECALCIFEROL
  11. AMLODIPINE BESYLATE. [Concomitant]
     Active Substance: AMLODIPINE BESYLATE
  12. ATORVASTATIN [Concomitant]
     Active Substance: ATORVASTATIN
  13. MORPHINE [Concomitant]
     Active Substance: MORPHINE
  14. MAGNESIUM [Concomitant]
     Active Substance: MAGNESIUM
  15. PHOSPHATE [Concomitant]
     Active Substance: UNSPECIFIED INGREDIENT
  16. LISINOPRIL. [Concomitant]
     Active Substance: LISINOPRIL
  17. NITROGLYCERIN. [Concomitant]
     Active Substance: NITROGLYCERIN
  18. OXYCODONE [Concomitant]
     Active Substance: OXYCODONE
  19. SENOKOT-S [Concomitant]
     Active Substance: DOCUSATE SODIUM\SENNOSIDES
  20. DAPAGLIPLOZDI PROPANBDIOL [Concomitant]
  21. FARXIGA [Suspect]
     Active Substance: DAPAGLIFLOZIN PROPANEDIOL
     Indication: TYPE 2 DIABETES MELLITUS
     Route: 048
     Dates: start: 20151013, end: 20151204
  22. FARXIGA [Suspect]
     Active Substance: DAPAGLIFLOZIN PROPANEDIOL
     Indication: HYPOTENSION
     Route: 048
     Dates: start: 20151013, end: 20151204
  23. METFORMIN [Concomitant]
     Active Substance: METFORMIN HYDROCHLORIDE
  24. CIPROFLOXACIN. [Concomitant]
     Active Substance: CIPROFLOXACIN
  25. OXYCODONE HYDROCHLORORIDE [Concomitant]
  26. LANTUS SOLOSTAR [Concomitant]
     Active Substance: INSULIN GLARGINE
  27. RELION NOVOLIN [Concomitant]
  28. GLIPIZIDE. [Concomitant]
     Active Substance: GLIPIZIDE
  29. TRAZODONE [Concomitant]
     Active Substance: TRAZODONE HYDROCHLORIDE
  30. NOVOLOG [Concomitant]
     Active Substance: INSULIN ASPART
  31. METRONIDAZOLE. [Concomitant]
     Active Substance: METRONIDAZOLE
  32. DOCUSATE [Concomitant]
     Active Substance: DOCUSATE
  33. METOPROLOL SUCCINATE. [Concomitant]
     Active Substance: METOPROLOL SUCCINATE
  34. FLUOXETINE [Concomitant]
     Active Substance: FLUOXETINE HYDROCHLORIDE
  35. CARVEDILOL. [Concomitant]
     Active Substance: CARVEDILOL
  36. MORPHINE SULFATE. [Concomitant]
     Active Substance: MORPHINE SULFATE
  37. MIRALAX [Concomitant]
     Active Substance: POLYETHYLENE GLYCOL 3350
  38. LACTOBACILLUS [Concomitant]
     Active Substance: LACTOBACILLUS ACIDOPHILUS
  39. NEPRO [Concomitant]
     Active Substance: DIETARY SUPPLEMENT
  40. NYSTATIN. [Concomitant]
     Active Substance: NYSTATIN
  41. CLINDAMYCIN. [Concomitant]
     Active Substance: CLINDAMYCIN
  42. CEFEPIME [Concomitant]
     Active Substance: CEFEPIME HYDROCHLORIDE
  43. VANCOMYCIN [Concomitant]
     Active Substance: VANCOMYCIN
  44. GLUCERNA [Concomitant]
     Active Substance: AMINO ACIDS\DEXTROSE\ELECTROLYTES NOS\SOYBEAN OIL\VITAMINS
  45. DEXTROSE. [Concomitant]
     Active Substance: DEXTROSE
  46. ENOXAPARIN [Concomitant]
     Active Substance: ENOXAPARIN
  47. TROPONIN [Concomitant]
  48. BYDUREON [Concomitant]
     Active Substance: EXENATIDE
  49. SENNA [Concomitant]
     Active Substance: SENNA LEAF\SENNOSIDES\SENNOSIDES A AND B
  50. SODIUM CHLORIDE. [Concomitant]
     Active Substance: SODIUM CHLORIDE
  51. HEPARIN [Concomitant]
     Active Substance: HEPARIN SODIUM
  52. NAPROXEN SODIUM. [Concomitant]
     Active Substance: NAPROXEN SODIUM

REACTIONS (6)
  - Deformity [Unknown]
  - Urinary tract infection [Unknown]
  - Fournier^s gangrene [Unknown]
  - Necrotising soft tissue infection [Unknown]
  - Vulval abscess [Unknown]
  - Necrotising fasciitis [Unknown]

NARRATIVE: CASE EVENT DATE: 20151125
